FAERS Safety Report 15221933 (Version 1)
Quarter: 2018Q3

REPORT INFORMATION
  Report Type: Spontaneous
  Country: US (occurrence: US)
  Receive Date: 20180705
  Receipt Date: 20180705
  Transmission Date: 20181010
  Serious: Yes (Disabling)
  Sender: FDA-Public Use
  Company Number: None

PATIENT
  Age: 63 Year
  Sex: Male
  Weight: 114.75 kg

DRUGS (10)
  1. FISH OIL [Concomitant]
     Active Substance: FISH OIL
  2. TAURINE [Concomitant]
     Active Substance: TAURINE
  3. CIALIS [Concomitant]
     Active Substance: TADALAFIL
  4. CLONIDINE TRANSDERMAL SYSTEM [Suspect]
     Active Substance: CLONIDINE
     Indication: HYPERTENSION
     Dosage: ?          QUANTITY:1 PATCH(ES);?
     Route: 062
     Dates: start: 20180624, end: 20180625
  5. NICARDIPINE [Concomitant]
     Active Substance: NICARDIPINE
  6. VALSARTAN. [Concomitant]
     Active Substance: VALSARTAN
  7. BYSTOLIC [Concomitant]
     Active Substance: NEBIVOLOL HYDROCHLORIDE
  8. VITAMIN D [Concomitant]
     Active Substance: CHOLECALCIFEROL
  9. JARDIANCE [Concomitant]
     Active Substance: EMPAGLIFLOZIN
  10. HAWTHORNE [Concomitant]

REACTIONS (6)
  - Impaired driving ability [None]
  - Gait disturbance [None]
  - Nausea [None]
  - Balance disorder [None]
  - Psychomotor skills impaired [None]
  - Disorientation [None]

NARRATIVE: CASE EVENT DATE: 20180625
